FAERS Safety Report 5131929-7 (Version None)
Quarter: 2006Q4

REPORT INFORMATION
  Report Type: 
  Country: None (occurrence: None)
  Receive Date: 20061016
  Receipt Date: 20060816
  Transmission Date: 20070319
  Serious: Yes (Other)
  Sender: FDA-Public Use
  Company Number: 2006100057

PATIENT
  Sex: Male

DRUGS (3)
  1. XALATAN [Suspect]
     Indication: ABNORMAL SENSATION IN EYE
     Dosage: (1 DROP, UNKNOWN), OPHTHALMIC
     Route: 047
  2. VIAGRA [Suspect]
     Indication: DRUG USE FOR UNKNOWN INDICATION
  3. YOHIMBINE HYDROCHLORIDE (YOHIMBINE HYDROCHLORIDE) [Suspect]
     Indication: SEXUAL DYSFUNCTION

REACTIONS (10)
  - DELIRIUM [None]
  - DRUG INEFFECTIVE [None]
  - EAR DISORDER [None]
  - EYE DISORDER [None]
  - HEART RATE IRREGULAR [None]
  - INTRAOCULAR PRESSURE INCREASED [None]
  - MENTAL IMPAIRMENT [None]
  - TINNITUS [None]
  - VISION BLURRED [None]
  - VISUAL ACUITY REDUCED [None]
